FAERS Safety Report 7226995-9 (Version None)
Quarter: 2011Q1

REPORT INFORMATION
  Report Type: 
  Country: None (occurrence: None)
  Receive Date: 20110114
  Receipt Date: 20110103
  Transmission Date: 20110831
  Serious: Yes (Hospitalization, Other)
  Sender: FDA-Public Use
  Company Number: BR-ELI_LILLY_AND_COMPANY-BR201011004721

PATIENT
  Sex: Female
  Weight: 58 kg

DRUGS (4)
  1. CYMBALTA [Suspect]
     Indication: DEPRESSION
     Dosage: UNK, UNKNOWN
     Route: 048
     Dates: start: 20100801
  2. SINVASTATINA [Concomitant]
     Indication: CARDIAC DISORDER
     Dosage: 20 MG, DAILY (1/D)
     Route: 048
  3. METFORMIN HCL [Concomitant]
     Indication: DIABETES MELLITUS
     Dosage: 750 MG, DAILY (1/D)
     Route: 048
  4. BROMAZEPAM [Concomitant]
     Indication: DEPRESSION
     Dosage: 10 MG, EACH EVENING
     Route: 048

REACTIONS (3)
  - GASTROINTESTINAL CARCINOMA [None]
  - WEIGHT DECREASED [None]
  - DEPRESSION [None]
